FAERS Safety Report 7478604-1 (Version None)
Quarter: 2011Q2

REPORT INFORMATION
  Report Type: 
  Country: None (occurrence: None)
  Receive Date: 20110513
  Receipt Date: 20110503
  Transmission Date: 20111010
  Serious: Yes (Other)
  Sender: FDA-Public Use
  Company Number: IT-JNJFOC-20110504483

PATIENT
  Sex: Female

DRUGS (3)
  1. DOXORUBICIN HCL [Suspect]
     Indication: BREAST CANCER METASTATIC
     Route: 042
  2. VINORELBINE [Suspect]
     Indication: BREAST CANCER METASTATIC
     Dosage: DAY 15 OF THE CYCLE
     Route: 058
  3. VINORELBINE [Suspect]
     Dosage: DAY 1 OF THE CYCLE
     Route: 058

REACTIONS (1)
  - NEUROTOXICITY [None]
